FAERS Safety Report 7038508-5 (Version None)
Quarter: 2010Q4

REPORT INFORMATION
  Report Type: 
  Country: None (occurrence: None)
  Receive Date: 20101011
  Receipt Date: 20100611
  Transmission Date: 20110411
  Serious: No
  Sender: FDA-Public Use
  Company Number: US-PFIZER INC-2010073858

PATIENT
  Sex: Female
  Weight: 48 kg

DRUGS (3)
  1. GABAPENTIN [Suspect]
     Indication: HAEMANGIOMA
     Dosage: 100 MG DAILY
     Route: 048
     Dates: start: 20100101
  2. LEVOTHYROXINE [Concomitant]
     Indication: HYPOTHYROIDISM
     Dosage: 75 UG, DAILY
     Route: 048
  3. VAGIFEM [Concomitant]
     Indication: VULVOVAGINAL DRYNESS
     Dosage: 10 UG, 2X/WEEK
     Route: 067
     Dates: start: 20060101

REACTIONS (2)
  - FEELING ABNORMAL [None]
  - THINKING ABNORMAL [None]
